APPROVED DRUG PRODUCT: VANCOCIN HYDROCHLORIDE
Active Ingredient: VANCOMYCIN HYDROCHLORIDE
Strength: EQ 1GM BASE/VIAL
Dosage Form/Route: INJECTABLE;INJECTION
Application: A062716 | Product #002
Applicant: STERISCIENCE PTE LTD
Approved: Mar 13, 1987 | RLD: No | RS: No | Type: DISCN